FAERS Safety Report 8818712 (Version 1)
Quarter: 2012Q4

REPORT INFORMATION
  Report Type: 
  Country: US (occurrence: US)
  Receive Date: 20121001
  Receipt Date: 20121001
  Transmission Date: 20130627
  Serious: Yes (Other)
  Sender: FDA-Public Use
  Company Number: US-ROCHE-1129529

PATIENT
  Sex: Male
  Weight: 54.48 kg

DRUGS (2)
  1. HERCEPTIN [Suspect]
     Indication: GASTROOESOPHAGEAL CANCER
     Route: 065
     Dates: start: 19991228, end: 20000314
  2. HERCEPTIN [Suspect]
     Indication: GASTRIC CANCER

REACTIONS (3)
  - Disease progression [Unknown]
  - Hydronephrosis [Recovered/Resolved]
  - Abdominal pain [Unknown]
